FAERS Safety Report 5578491-2 (Version None)
Quarter: 2007Q4

REPORT INFORMATION
  Report Type: 
  Country: None (occurrence: None)
  Receive Date: 20071231
  Receipt Date: 20071221
  Transmission Date: 20080405
  Serious: Yes (Hospitalization)
  Sender: FDA-Public Use
  Company Number: FI-MERCK-0712FIN00007

PATIENT
  Age: 87 Year
  Sex: Female
  Weight: 57 kg

DRUGS (13)
  1. JANUVIA [Suspect]
     Indication: DIABETES MELLITUS
     Route: 048
     Dates: start: 20071016, end: 20071121
  2. JANUVIA [Suspect]
     Route: 048
     Dates: start: 20071129, end: 20071204
  3. LATANOPROST [Concomitant]
     Route: 047
  4. SIMVASTATIN [Concomitant]
     Route: 048
  5. METOPROLOL SUCCINATE [Concomitant]
     Route: 048
  6. ASPIRIN [Concomitant]
     Route: 048
  7. ISOSORBIDE MONONITRATE [Concomitant]
     Route: 048
  8. CALCIUM CARBONATE AND CHOLECALCIFEROL [Concomitant]
     Route: 048
  9. FUROSEMIDE [Concomitant]
     Route: 048
  10. ENALAPRIL MALEATE [Concomitant]
     Route: 048
  11. GLIMEPIRIDE [Concomitant]
     Route: 048
  12. OMEPRAZOLE [Concomitant]
     Route: 048
  13. CETIRIZINE HYDROCHLORIDE [Concomitant]
     Route: 048

REACTIONS (2)
  - COUGH [None]
  - ERYTHEMA [None]
